FAERS Safety Report 7668457-0 (Version None)
Quarter: 2011Q3

REPORT INFORMATION
  Report Type: 
  Country: None (occurrence: None)
  Receive Date: 20110808
  Receipt Date: 20110729
  Transmission Date: 20111222
  Serious: Yes (Other)
  Sender: FDA-Public Use
  Company Number: US-BRACCO-002979

PATIENT
  Sex: Female
  Weight: 67.73 kg

DRUGS (27)
  1. EPOGEN [Concomitant]
  2. LOVASTATIN [Concomitant]
  3. LEVOTHYROXINE SODIUM [Concomitant]
  4. HEPARIN [Concomitant]
  5. LISINOPRIL [Concomitant]
  6. CONTRAST MEDIA [Suspect]
     Indication: NUCLEAR MAGNETIC RESONANCE IMAGING
     Route: 042
     Dates: start: 20060201, end: 20060201
  7. SIMVASTATIN [Concomitant]
  8. NEPHRO-VITE [Concomitant]
  9. MULTIHANCE [Suspect]
     Indication: NUCLEAR MAGNETIC RESONANCE IMAGING ABDOMINAL
     Route: 042
     Dates: start: 20060324, end: 20060324
  10. ATROPINE [Concomitant]
     Route: 040
     Dates: start: 20080424, end: 20080424
  11. HYDRALAZINE HCL [Concomitant]
  12. EPINEPHRINE [Concomitant]
     Route: 040
     Dates: start: 20080424, end: 20080424
  13. DILTIAZEM [Concomitant]
  14. TAMOXIFEN CITRATE [Concomitant]
     Route: 065
     Dates: start: 20080201
  15. FOSRENOL [Concomitant]
  16. EPINEPHRINE [Concomitant]
     Route: 040
     Dates: start: 20080424, end: 20080424
  17. METOPROLOL TARTRATE [Concomitant]
  18. TRENTAL [Concomitant]
  19. ATROPINE [Concomitant]
     Route: 040
     Dates: start: 20080424, end: 20080424
  20. PHOSLO [Concomitant]
  21. DARBEPOETIN ALFA [Concomitant]
  22. MAGNEVIST [Suspect]
     Indication: NUCLEAR MAGNETIC RESONANCE IMAGING
     Route: 042
     Dates: start: 20050104, end: 20050104
  23. MAGNEVIST [Suspect]
     Indication: NUCLEAR MAGNETIC RESONANCE IMAGING BRAIN
     Route: 042
     Dates: start: 20060208, end: 20060208
  24. FERROUS SULFATE TAB [Concomitant]
  25. OMEPRAZOLE [Concomitant]
  26. MAGNEVIST [Suspect]
     Indication: NUCLEAR MAGNETIC RESONANCE IMAGING ABNORMAL
     Route: 042
     Dates: start: 20050104, end: 20050104
  27. ARANESP [Concomitant]
     Route: 058

REACTIONS (1)
  - NEPHROGENIC SYSTEMIC FIBROSIS [None]
